FAERS Safety Report 4470455-5 (Version None)
Quarter: 2004Q4

REPORT INFORMATION
  Report Type: 
  Country: None (occurrence: None)
  Receive Date: 20041005
  Receipt Date: 20041005
  Transmission Date: 20050328
  Serious: Yes (Other)
  Sender: FDA-Public Use
  Company Number: None

PATIENT
  Sex: Female
  Weight: 82.5547 kg

DRUGS (3)
  1. ULTRAM [Suspect]
     Indication: BACK PAIN
     Dosage: 50 MG  T1-2 QID PO
     Route: 048
  2. ULTRAM [Suspect]
     Indication: RADICULOPATHY
     Dosage: 50 MG  T1-2 QID PO
     Route: 048
  3. VICODIN [Suspect]
     Dosage: 10/650 ONE-TWO QID PO
     Route: 048

REACTIONS (2)
  - DRUG INEFFECTIVE [None]
  - PHARMACEUTICAL PRODUCT COMPLAINT [None]
